FAERS Safety Report 14366958 (Version 4)
Quarter: 2018Q1

REPORT INFORMATION
  Report Type: Spontaneous
  Country: US (occurrence: US)
  Receive Date: 20180109
  Receipt Date: 20180211
  Transmission Date: 20180509
  Serious: No
  Sender: FDA-Public Use
  Company Number: US-GLAXOSMITHKLINE-US2018001455

PATIENT
  Sex: Male

DRUGS (1)
  1. ADVAIR DISKUS [Suspect]
     Active Substance: FLUTICASONE PROPIONATE\SALMETEROL XINAFOATE
     Indication: PNEUMONIA VIRAL
     Dosage: 1 PUFF(S), BID
     Route: 055
     Dates: end: 20180104

REACTIONS (3)
  - Nonspecific reaction [Unknown]
  - Pain in extremity [Recovered/Resolved]
  - Product use in unapproved indication [Recovered/Resolved]
